APPROVED DRUG PRODUCT: GABAPENTIN
Active Ingredient: GABAPENTIN
Strength: 100MG
Dosage Form/Route: TABLET;ORAL
Application: A211313 | Product #003 | TE Code: AB1
Applicant: STRIDES PHARMA GLOBAL PTE LTD
Approved: Dec 20, 2024 | RLD: No | RS: No | Type: RX